FAERS Safety Report 6613096-3 (Version None)
Quarter: 2010Q1

REPORT INFORMATION
  Report Type: 
  Country: None (occurrence: None)
  Receive Date: 20100223
  Receipt Date: 20100209
  Transmission Date: 20100710
  Serious: Yes (Other)
  Sender: FDA-Public Use
  Company Number: 2010AP000260

PATIENT
  Age: 77 Year
  Sex: Male

DRUGS (5)
  1. PRAVASTATIN SODIUM [Suspect]
     Indication: PROPHYLAXIS
     Dosage: 40 MG;
     Dates: start: 20090701, end: 20091228
  2. CALCIUM CARBONATE [Concomitant]
  3. COLECALCIFEROL (COLECALCIFEROL) [Concomitant]
  4. RISEDRONIC ACID (RISEDRONIC ACID) [Concomitant]
  5. TEMAZEPAM [Concomitant]

REACTIONS (3)
  - COGNITIVE DISORDER [None]
  - CONFUSIONAL STATE [None]
  - DEPRESSED MOOD [None]
